FAERS Safety Report 5670072-5 (Version None)
Quarter: 2008Q1

REPORT INFORMATION
  Report Type: 
  Country: None (occurrence: None)
  Receive Date: 20080312
  Receipt Date: 20080229
  Transmission Date: 20080703
  Serious: Yes (Life-Threatening, Hospitalization)
  Sender: FDA-Public Use
  Company Number: 2008AL001259

PATIENT
  Age: 43 Year
  Sex: Female

DRUGS (4)
  1. PROPRANOLOL HYDROCHLORIDE [Suspect]
     Dates: start: 20050903
  2. PROPYLTHIOURACIL [Concomitant]
  3. HYDROCORTISONE [Concomitant]
  4. CARBIMAZOLE [Concomitant]

REACTIONS (7)
  - CARDIO-RESPIRATORY ARREST [None]
  - CIRCULATORY COLLAPSE [None]
  - DILATATION ATRIAL [None]
  - HYPERTHYROIDISM [None]
  - MITRAL VALVE PROLAPSE [None]
  - SINUS BRADYCARDIA [None]
  - URINARY TRACT INFECTION [None]
